FAERS Safety Report 4651576-0 (Version None)
Quarter: 2005Q2

REPORT INFORMATION
  Report Type: 
  Country: None (occurrence: None)
  Receive Date: 20050404
  Receipt Date: 20041108
  Transmission Date: 20051028
  Serious: No
  Sender: FDA-Public Use
  Company Number: USA041183498

PATIENT
  Age: 64 Year
  Sex: Female
  Weight: 109.3169 kg

DRUGS (9)
  1. CYMBALTA [Suspect]
     Indication: DEPRESSION
     Dosage: 60 MG
     Dates: start: 20040901
  2. BEXTRA [Concomitant]
  3. VIOXX [Concomitant]
  4. ACTOS [Concomitant]
  5. METFORMIN [Concomitant]
  6. HYDROCHLOROTHIAZIDE [Concomitant]
  7. AMBIEN [Concomitant]
  8. NORVASC [Concomitant]
  9. DARVOCET-N 100 [Concomitant]

REACTIONS (3)
  - CRYING [None]
  - DEPRESSION [None]
  - INSOMNIA [None]
